FAERS Safety Report 10982980 (Version 5)
Quarter: 2015Q2

REPORT INFORMATION
  Report Type: Spontaneous
  Country: US (occurrence: None)
  Receive Date: 20150401
  Receipt Date: 20150507
  Transmission Date: 20150821
  Serious: Yes (Life-Threatening, Hospitalization, Other)
  Sender: FDA-Public Use
  Company Number: ADR-2015-00611

PATIENT
  Age: 64 Year
  Sex: Male

DRUGS (16)
  1. OMEPRAZOLE. [Suspect]
     Active Substance: OMEPRAZOLE
     Dosage: QPM
     Route: 048
  2. BUPIVACAINE [Suspect]
     Active Substance: BUPIVACAINE
     Indication: MUSCLE SPASTICITY
  3. EXALGO [Suspect]
     Active Substance: HYDROMORPHONE HYDROCHLORIDE
     Dosage: TAKE 1 PO QD FOR 15 DAYS
     Route: 048
  4. FLUTICASONE FUROATE [Suspect]
     Active Substance: FLUTICASONE FUROATE
     Dosage: NAS QG SPRAY INTO EACH NOSTRIL FOR 30 DAYS
     Route: 045
  5. TAMSULOSIN [Suspect]
     Active Substance: TAMSULOSIN
     Dosage: TAKE 2 CAPSULES PO QD FOR 30 DAYS
     Route: 048
  6. URECHOLINE [Suspect]
     Active Substance: BETHANECHOL CHLORIDE
     Route: 048
  7. VALIUM [Suspect]
     Active Substance: DIAZEPAM
     Route: 048
  8. CALCITROL [Suspect]
     Active Substance: CALCITRIOL
     Indication: CONSTIPATION
     Dosage: TAKE 1 PO AS DIRECTED ON MONDAY, WEDNESDAY, FRIDAY AT 12:00
     Route: 048
  9. SIMVASTATIN. [Suspect]
     Active Substance: SIMVASTATIN
     Dosage: 1 PO QPM
     Route: 048
  10. COLACE [Suspect]
     Active Substance: DOCUSATE SODIUM
     Indication: CONSTIPATION
     Dosage: TAKE 1 PO AS NEEDED FOR CONSTIPATION FOR 30 DAYS
     Route: 048
  11. HYDROMORPHONE HCL [Suspect]
     Active Substance: HYDROMORPHONE HYDROCHLORIDE
     Dosage: TAKE 2 TABLETS PO EVERY 6 HOURS
     Route: 048
  12. SENNOSIDES. [Suspect]
     Active Substance: SENNOSIDES
     Indication: CONSTIPATION
     Dosage: TAKE 1 TABLET PO BID AS NEEDED FOR CONSTIPATION FOR 10 DAYS
     Route: 048
  13. TRAZODONE [Suspect]
     Active Substance: TRAZODONE HYDROCHLORIDE
     Indication: INSOMNIA
     Dosage: TAKE 3 TABLETS PO QHS AS NEEDED FOR INSOMNIA FOR 30 DAYS
     Route: 048
  14. COMPOUNDED BACLOFEN INTRATHECAL 2000 MCG/ML [Suspect]
     Active Substance: BACLOFEN
     Indication: MUSCLE SPASTICITY
  15. LYRICA [Suspect]
     Active Substance: PREGABALIN
     Route: 048
  16. MULTIVITAMINS [Suspect]
     Active Substance: VITAMINS
     Route: 048

REACTIONS (29)
  - Hypoaesthesia [None]
  - Post procedural complication [None]
  - Device infusion issue [None]
  - Coma [None]
  - Atelectasis [None]
  - Miosis [None]
  - Overdose [None]
  - Vasoplegia syndrome [None]
  - Oedema peripheral [None]
  - Device issue [None]
  - Musculoskeletal stiffness [None]
  - Red blood cell count decreased [None]
  - Implant site scar [None]
  - Shock [None]
  - Pneumonia aspiration [None]
  - Incorrect route of drug administration [None]
  - Muscular weakness [None]
  - Muscle rigidity [None]
  - Blood glucose increased [None]
  - Unresponsive to stimuli [None]
  - Somnolence [None]
  - Chest X-ray abnormal [None]
  - Haemoglobin decreased [None]
  - Haematocrit decreased [None]
  - Paralysis [None]
  - Device malfunction [None]
  - Heart rate decreased [None]
  - Hypotension [None]
  - Respiratory rate decreased [None]

NARRATIVE: CASE EVENT DATE: 20150323
